FAERS Safety Report 10143177 (Version 1)
Quarter: 2014Q2

REPORT INFORMATION
  Report Type: Spontaneous
  Country: ES (occurrence: ES)
  Receive Date: 20140430
  Receipt Date: 20140430
  Transmission Date: 20141212
  Serious: Yes (Hospitalization)
  Sender: FDA-Public Use
  Company Number: ES-CELGENEUS-144-50794-14043131

PATIENT
  Age: 71 Year
  Sex: Female

DRUGS (2)
  1. VIDAZA [Suspect]
     Indication: MYELODYSPLASTIC SYNDROME
     Route: 042
     Dates: start: 20130401, end: 20140123
  2. VIDAZA [Suspect]
     Route: 042
     Dates: start: 20140325

REACTIONS (2)
  - Enteritis [Recovered/Resolved]
  - Gastrointestinal hypomotility [Recovered/Resolved]
